FAERS Safety Report 23104551 (Version 2)
Quarter: 2023Q4

REPORT INFORMATION
  Report Type: Spontaneous
  Country: US (occurrence: US)
  Receive Date: 20231025
  Receipt Date: 20231109
  Transmission Date: 20240110
  Serious: Yes (Life-Threatening, Hospitalization, Other)
  Sender: FDA-Public Use
  Company Number: US-PFIZER INC-202300340754

PATIENT
  Age: 73 Year
  Sex: Male
  Weight: 80 kg

DRUGS (15)
  1. MIDAZOLAM [Suspect]
     Active Substance: MIDAZOLAM
     Indication: Anaesthesia
     Dosage: 2 MG
  2. MIDAZOLAM [Suspect]
     Active Substance: MIDAZOLAM
     Dosage: 2 MG
  3. MIDAZOLAM [Suspect]
     Active Substance: MIDAZOLAM
     Dosage: 2 MG
  4. MEPIVACAINE HYDROCHLORIDE [Concomitant]
     Active Substance: MEPIVACAINE HYDROCHLORIDE
     Indication: Anaesthesia
     Dosage: 3 ML OF 2%
  5. PHENYLEPHRINE [Concomitant]
     Active Substance: PHENYLEPHRINE HYDROCHLORIDE
     Dosage: 160 UG
     Route: 042
  6. PHENYLEPHRINE [Concomitant]
     Active Substance: PHENYLEPHRINE HYDROCHLORIDE
     Dosage: 100 UG
     Route: 042
  7. PHENYLEPHRINE [Concomitant]
     Active Substance: PHENYLEPHRINE HYDROCHLORIDE
     Dosage: 100 MCG/MIN
     Route: 042
  8. EPHEDRINE [Concomitant]
     Active Substance: EPHEDRINE
     Dosage: 10 MG
     Route: 042
  9. EPINEPHRINE [Concomitant]
     Active Substance: EPINEPHRINE
     Dosage: 5 MG
     Route: 042
  10. NOREPINEPHRINE [Concomitant]
     Active Substance: NOREPINEPHRINE
     Dosage: 5-20 MCG/MIN
     Route: 042
  11. DEXMEDETOMIDINE [Concomitant]
     Active Substance: DEXMEDETOMIDINE
     Dosage: 0.7 MCG/KG/HR
  12. FENTANYL [Concomitant]
     Active Substance: FENTANYL\FENTANYL CITRATE
     Dosage: 50 UG
  13. PROPOFOL [Concomitant]
     Active Substance: PROPOFOL
     Dosage: 60 MCG/KG/MINUTE
  14. PROPOFOL [Concomitant]
     Active Substance: PROPOFOL
     Dosage: DECREASED TO 40 MCG/KG/MIN
  15. CEFAZOLIN [Concomitant]
     Active Substance: CEFAZOLIN
     Indication: Antibiotic prophylaxis
     Dosage: 2 G

REACTIONS (2)
  - Anaphylactic reaction [Recovered/Resolved]
  - Circulatory collapse [Recovered/Resolved]
